FAERS Safety Report 4986290-5 (Version None)
Quarter: 2006Q2

REPORT INFORMATION
  Report Type: 
  Country: None (occurrence: None)
  Receive Date: 20060428
  Receipt Date: 20060216
  Transmission Date: 20061013
  Serious: Yes (Hospitalization, Other)
  Sender: FDA-Public Use
  Company Number: US-MERCK-0602USA04658

PATIENT
  Age: 67 Year
  Sex: Male
  Weight: 89 kg

DRUGS (1)
  1. VIOXX [Suspect]
     Indication: ARTHRITIS
     Route: 048
     Dates: start: 20020401, end: 20040109

REACTIONS (13)
  - ARTERIOSCLEROSIS [None]
  - BRADYCARDIA [None]
  - CEREBROVASCULAR ACCIDENT [None]
  - DEHYDRATION [None]
  - DEPRESSION [None]
  - DIVERTICULUM [None]
  - DYSPHAGIA [None]
  - GASTRITIS EROSIVE [None]
  - HIATUS HERNIA [None]
  - HYPOTENSION [None]
  - LOBAR PNEUMONIA [None]
  - MENTAL STATUS CHANGES [None]
  - SPINAL DISORDER [None]
